FAERS Safety Report 14190069 (Version 1)
Quarter: 2017Q4

REPORT INFORMATION
  Report Type: Spontaneous
  Country: US (occurrence: None)
  Receive Date: 20171114
  Receipt Date: 20171114
  Transmission Date: 20180321
  Serious: No
  Sender: FDA-Public Use
  Company Number: None

PATIENT
  Age: 90 Year
  Sex: Female

DRUGS (1)
  1. TASIGNA [Suspect]
     Active Substance: NILOTINIB
     Indication: CHRONIC MYELOID LEUKAEMIA
     Route: 048
     Dates: start: 20161108

REACTIONS (6)
  - Impaired driving ability [None]
  - Peripheral swelling [None]
  - Joint swelling [None]
  - Gait inability [None]
  - Swelling [None]
  - Vaccination complication [None]

NARRATIVE: CASE EVENT DATE: 20170926
